FAERS Safety Report 5123267-3 (Version None)
Quarter: 2006Q4

REPORT INFORMATION
  Report Type: 
  Country: None (occurrence: None)
  Receive Date: 20061009
  Receipt Date: 20060518
  Transmission Date: 20070319
  Serious: Yes (Other)
  Sender: FDA-Public Use
  Company Number: JP-JPN-A200601630

PATIENT
  Sex: Male

DRUGS (10)
  1. EPIVIR [Suspect]
     Indication: HIV INFECTION
     Route: 048
     Dates: start: 20050411
  2. ZERIT [Suspect]
     Indication: HIV INFECTION
     Route: 048
     Dates: start: 20050701
  3. KALETRA [Suspect]
     Indication: ACQUIRED IMMUNODEFICIENCY SYNDROME
     Dosage: 6CAP PER DAY
     Route: 048
     Dates: start: 20050411
  4. VIREAD [Suspect]
     Indication: HIV INFECTION
     Route: 048
     Dates: start: 20050411, end: 20050630
  5. DENOSINE (GANCICLOVIR) [Suspect]
     Indication: CYTOMEGALOVIRUS CHORIORETINITIS
     Route: 042
     Dates: start: 20050527, end: 20050616
  6. VALIXA [Suspect]
     Indication: CYTOMEGALOVIRUS CHORIORETINITIS
     Dosage: 450MG VARIABLE DOSE
     Route: 048
     Dates: start: 20050617
  7. BACTRIM [Suspect]
     Route: 048
     Dates: start: 20050402
  8. DOXORUBICIN [Concomitant]
     Indication: KAPOSI'S SARCOMA
     Dosage: 31MG PER DAY
     Route: 065
     Dates: start: 20050914
  9. UNASYN [Concomitant]
     Indication: TONSILLITIS
     Dosage: 3000MG TWICE PER DAY
     Route: 042
     Dates: start: 20050503, end: 20050517
  10. ZEFIX [Concomitant]
     Route: 048
     Dates: start: 20050623, end: 20050630

REACTIONS (3)
  - CYTOMEGALOVIRUS CHORIORETINITIS [None]
  - PANCYTOPENIA [None]
  - RENAL IMPAIRMENT [None]
